FAERS Safety Report 10155686 (Version 1)
Quarter: 2014Q2

REPORT INFORMATION
  Report Type: Report from Study
  Country: US (occurrence: US)
  Receive Date: 20140506
  Receipt Date: 20140506
  Transmission Date: 20141212
  Serious: Yes (Other)
  Sender: FDA-Public Use
  Company Number: PHEH2014US008755

PATIENT
  Age: 32 Year
  Sex: Female
  Weight: 58.5 kg

DRUGS (4)
  1. TOBI PODHALER [Suspect]
     Indication: CYSTIC FIBROSIS
     Dosage: 112 MG, BID
     Route: 055
     Dates: start: 201308
  2. ADVAIR [Concomitant]
     Dosage: UNK UKN, UNK
  3. PULMOZYME [Concomitant]
     Dosage: UNK UKN, UNK
  4. HYPERTONIC SALINE SOLUTION [Concomitant]
     Dosage: UNK UKN, UNK

REACTIONS (3)
  - Candida infection [Recovered/Resolved]
  - Tongue haemorrhage [Recovered/Resolved]
  - Tongue coated [Recovered/Resolved]
